FAERS Safety Report 7852887-8 (Version None)
Quarter: 2011Q4

REPORT INFORMATION
  Report Type: 
  Country: None (occurrence: None)
  Receive Date: 20111026
  Receipt Date: 20111017
  Transmission Date: 20120403
  Serious: Yes (Disabling)
  Sender: FDA-Public Use
  Company Number: SE-ASTRAZENECA-2011SE62368

PATIENT
  Age: 19892 Day
  Sex: Female

DRUGS (1)
  1. MARCAINE [Suspect]
     Route: 065
     Dates: end: 20090203

REACTIONS (2)
  - SENSORY DISTURBANCE [None]
  - PAIN [None]
